FAERS Safety Report 9419741 (Version 5)
Quarter: 2014Q1

REPORT INFORMATION
  Report Type: Report from Study
  Country: US (occurrence: US)
  Receive Date: 20130725
  Receipt Date: 20140306
  Transmission Date: 20141002
  Serious: Yes (Hospitalization)
  Sender: FDA-Public Use
  Company Number: US-PFIZER INC-2013213633

PATIENT
  Age: 65 Year
  Sex: Female
  Weight: 42.3 kg

DRUGS (29)
  1. DOXORUBICIN HCL [Suspect]
     Indication: SARCOMA METASTATIC
     Dosage: CYCLIC
     Dates: start: 20121212
  2. DOXORUBICIN HCL [Suspect]
     Dosage: 75 MG/M2 / 111 MG / BOLUS / CYCLE 6
     Route: 040
     Dates: start: 20130403
  3. TH-302 [Suspect]
     Indication: SARCOMA METASTATIC
     Dosage: UNK, CYCLIC
     Dates: start: 20121212
  4. TH-302 [Suspect]
     Dosage: 225 MG/M2/333 MG /INFUSION/CYCLE #6 DAY 8
     Dates: start: 20130410
  5. ASPIRIN [Concomitant]
     Dosage: UNK
     Dates: start: 20120222
  6. PLAVIX [Concomitant]
     Dosage: UNK
     Dates: start: 20120222
  7. LIPITOR [Concomitant]
     Dosage: UNK
     Dates: start: 20120222
  8. METOPROLOL [Concomitant]
     Dosage: UNK
     Dates: start: 20120222
  9. LISINOPRIL [Concomitant]
     Dosage: UNK
     Dates: start: 20120222, end: 20130327
  10. NASONEX [Concomitant]
     Dosage: UNK
     Dates: start: 2007, end: 201212
  11. ALBUTEROL [Concomitant]
     Dosage: UNK
     Dates: start: 2006
  12. PANTOPRAZOLE [Concomitant]
     Dosage: UNK
     Dates: start: 20120222
  13. BENZOYL PEROXIDE W/CLINDAMYCIN [Concomitant]
     Dosage: UNK
     Dates: start: 1990
  14. TRETINOIN [Concomitant]
     Dosage: UNK
     Dates: start: 1990, end: 201301
  15. ACETAMINOPHEN [Concomitant]
     Dosage: UNK
     Dates: start: 20121212
  16. DIPHENHYDRAMINE [Concomitant]
     Dosage: UNK
     Dates: start: 20121212
  17. ONDANSETRON [Concomitant]
     Dosage: UNK
     Dates: start: 20121212
  18. ONDANSETRON [Concomitant]
     Dosage: UNK
     Dates: start: 20121213
  19. LORAZEPAM [Concomitant]
     Dosage: UNK
     Dates: start: 20121213
  20. VICODIN [Concomitant]
     Dosage: UNK
     Dates: start: 20121212
  21. EMEND [Concomitant]
     Dosage: UNK
     Dates: start: 20121212
  22. PROCHLORPERAZINE [Concomitant]
     Dosage: UNK
     Dates: start: 20121213
  23. VASELINE [Concomitant]
     Dosage: UNK
     Dates: start: 20130225
  24. COLACE [Concomitant]
     Dosage: UNK
     Dates: start: 20121217
  25. ROBITUSSIN [Concomitant]
     Dosage: UNK
     Dates: start: 201301
  26. IMODIUM [Concomitant]
     Dosage: UNK
     Dates: start: 201301
  27. UREA-CRESOL-SULFONATE SODIUM [Concomitant]
     Dosage: UNK
     Dates: start: 20130201
  28. SALINE [Concomitant]
     Dosage: UNK
     Dates: start: 2011
  29. MIRALAX [Concomitant]
     Dosage: UNK

REACTIONS (1)
  - Cellulitis [Recovered/Resolved]
